FAERS Safety Report 4307116-9 (Version None)
Quarter: 2004Q1

REPORT INFORMATION
  Report Type: 
  Country: None (occurrence: None)
  Receive Date: 20040226
  Receipt Date: 20040226
  Transmission Date: 20041129
  Serious: Yes (Other)
  Sender: FDA-Public Use
  Company Number: None

PATIENT
  Age: 66 Year
  Sex: Male
  Weight: 88.4514 kg

DRUGS (3)
  1. 500 MG GLUCOSAMINE [Suspect]
     Indication: ARTHRALGIA
     Dosage: 2 PILL DAILY
  2. ENALAPRIL MALEATE [Suspect]
     Indication: HYPERTENSION
     Dosage: 1 PILL DAILY
  3. CHONDROITIN 400 MG [Suspect]

REACTIONS (1)
  - BLOOD PRESSURE INCREASED [None]
